FAERS Safety Report 7070705-5 (Version None)
Quarter: 2010Q4

REPORT INFORMATION
  Report Type: 
  Country: None (occurrence: None)
  Receive Date: 20101029
  Receipt Date: 20101019
  Transmission Date: 20110411
  Serious: Yes (Other)
  Sender: FDA-Public Use
  Company Number: IN-JNJFOC-20101005635

PATIENT
  Age: 35 Year
  Sex: Female

DRUGS (1)
  1. GRISEOFULVIN [Suspect]
     Indication: BODY TINEA
     Dosage: TOTAL 4 DOSES
     Route: 065

REACTIONS (1)
  - GLOMERULONEPHRITIS ACUTE [None]
